FAERS Safety Report 24093048 (Version 1)
Quarter: 2024Q3

REPORT INFORMATION
  Report Type: Spontaneous
  Country: US (occurrence: US)
  Receive Date: 20240715
  Receipt Date: 20240715
  Transmission Date: 20241017
  Serious: Yes (Disabling)
  Sender: NOVO NORDISK
  Company Number: US-NOVOPROD-1246229

PATIENT

DRUGS (1)
  1. OZEMPIC [Suspect]
     Active Substance: SEMAGLUTIDE
     Indication: Product used for unknown indication
     Dosage: 0.25 FOUR WEEKS, 0.5
     Route: 058

REACTIONS (5)
  - Disability [Unknown]
  - Malaise [Unknown]
  - Somnolence [Unknown]
  - Diarrhoea [Unknown]
  - Product communication issue [Unknown]
